FAERS Safety Report 21317683 (Version 2)
Quarter: 2022Q4

REPORT INFORMATION
  Report Type: Spontaneous
  Country: US (occurrence: US)
  Receive Date: 20220911
  Receipt Date: 20221220
  Transmission Date: 20230113
  Serious: No
  Sender: FDA-Public Use
  Company Number: US-SA-SAC20220824001468

PATIENT
  Age: 62 Year
  Sex: Female

DRUGS (1)
  1. CAPRELSA [Suspect]
     Active Substance: VANDETANIB
     Indication: Thyroid cancer
     Dosage: 300 MG, QOD
     Route: 048
     Dates: start: 20180103

REACTIONS (3)
  - Hypotension [Unknown]
  - Fatigue [Unknown]
  - Weight decreased [Unknown]
